FAERS Safety Report 7012892-0 (Version None)
Quarter: 2010Q3

REPORT INFORMATION
  Report Type: 
  Country: None (occurrence: None)
  Receive Date: 20100915
  Receipt Date: 20100305
  Transmission Date: 20110219
  Serious: Yes (Other)
  Sender: FDA-Public Use
  Company Number: US-WYE-H13990310

PATIENT
  Age: 71 Year
  Sex: Male
  Weight: 81.72 kg

DRUGS (8)
  1. ADVIL [Suspect]
     Indication: NEURALGIA
     Dosage: 1 LIQUI-GEL TWICE DAILY, ORAL
     Route: 048
     Dates: start: 20100301, end: 20100305
  2. DIGOXIN [Concomitant]
  3. SIMVASTATIN [Concomitant]
  4. LISINOPRIL [Concomitant]
  5. BISOPROLOL FUMARATE [Concomitant]
  6. COREG [Concomitant]
  7. ASPIRIN [Concomitant]
  8. VICODIN [Concomitant]

REACTIONS (4)
  - DRUG EFFECT DECREASED [None]
  - LIP SWELLING [None]
  - OESOPHAGEAL OEDEMA [None]
  - SWOLLEN TONGUE [None]
